FAERS Safety Report 17132226 (Version 4)
Quarter: 2020Q2

REPORT INFORMATION
  Report Type: Report from Study
  Country: US (occurrence: US)
  Receive Date: 20191210
  Receipt Date: 20200428
  Transmission Date: 20200713
  Serious: No
  Sender: FDA-Public Use
  Company Number: NVSC2019US062687

PATIENT
  Sex: Female
  Weight: 7.7 kg

DRUGS (2)
  1. ZOLGENSMA [Suspect]
     Active Substance: ONASEMNOGENE ABEPARVOVEC-XIOI
     Indication: SPINAL MUSCULAR ATROPHY
  2. ZOLGENSMA [Suspect]
     Active Substance: ONASEMNOGENE ABEPARVOVEC-XIOI
     Indication: SPINAL MUSCULAR ATROPHY
     Dosage: UNK, ONCE/SINGLE
     Route: 042
     Dates: start: 20191127

REACTIONS (5)
  - Vomiting [Recovered/Resolved]
  - Swelling face [Recovered/Resolved]
  - Platelet count decreased [Unknown]
  - Hair growth abnormal [Recovered/Resolved]
  - Hepatic enzyme increased [Not Recovered/Not Resolved]
